FAERS Safety Report 12238085 (Version 1)
Quarter: 2016Q2

REPORT INFORMATION
  Report Type: Spontaneous
  Country: US (occurrence: US)
  Receive Date: 20160405
  Receipt Date: 20160405
  Transmission Date: 20160815
  Serious: No
  Sender: FDA-Public Use
  Company Number: US-GLAXOSMITHKLINE-US2016GSK042239

PATIENT
  Age: 58 Year
  Sex: Male

DRUGS (1)
  1. ANORO ELLIPTA [Suspect]
     Active Substance: UMECLIDINIUM BROMIDE\VILANTEROL TRIFENATATE
     Dosage: UNK
     Route: 055
     Dates: start: 201603, end: 201603

REACTIONS (4)
  - Drug dispensing error [Unknown]
  - Chest pain [Unknown]
  - Muscle spasms [Unknown]
  - Expired product administered [Unknown]

NARRATIVE: CASE EVENT DATE: 201603
